FAERS Safety Report 4295966-7 (Version None)
Quarter: 2004Q1

REPORT INFORMATION
  Report Type: 
  Country: None (occurrence: None)
  Receive Date: 20040212
  Receipt Date: 20040202
  Transmission Date: 20041129
  Serious: Yes (Hospitalization)
  Sender: FDA-Public Use
  Company Number: FEI2004-0044

PATIENT
  Sex: Female

DRUGS (1)
  1. PARAGARD T380A (INTRAUTERINE CONTRACEPTIVES) (UTERINE) [Suspect]
     Indication: CONTRACEPTION
     Dosage: INTRA-UTERINE
     Route: 015
     Dates: end: 20030210

REACTIONS (5)
  - CAESAREAN SECTION [None]
  - PRE-ECLAMPSIA [None]
  - PREGNANCY WITH CONTRACEPTIVE DEVICE [None]
  - PREMATURE BABY [None]
  - TWIN PREGNANCY [None]
